FAERS Safety Report 7561233-9 (Version None)
Quarter: 2011Q2

REPORT INFORMATION
  Report Type: 
  Country: None (occurrence: None)
  Receive Date: 20110621
  Receipt Date: 20100511
  Transmission Date: 20111010
  Serious: No
  Sender: FDA-Public Use
  Company Number: US-ASTRAZENECA-2010SE21493

PATIENT
  Age: 65 Year
  Sex: Female

DRUGS (5)
  1. BONIVA [Concomitant]
  2. SPIRIVA [Concomitant]
  3. SYNTHROID [Concomitant]
  4. EYE DROPS [Concomitant]
     Indication: DRY EYE
  5. PULMICORT FLEXHALER [Suspect]
     Indication: CHRONIC OBSTRUCTIVE PULMONARY DISEASE
     Dosage: ONE INHALATION TWO TIMES A DAY
     Route: 055
     Dates: start: 20100101

REACTIONS (4)
  - DYSPHONIA [None]
  - DRUG INEFFECTIVE [None]
  - LARYNGITIS [None]
  - DRY EYE [None]
